FAERS Safety Report 19682036 (Version 1)
Quarter: 2021Q3

REPORT INFORMATION
  Report Type: Other
  Country: HR (occurrence: HR)
  Receive Date: 20210810
  Receipt Date: 20210810
  Transmission Date: 20211014
  Serious: Yes (Hospitalization, Other)
  Sender: FDA-Public Use
  Company Number: HR-DEXPHARM-20211154

PATIENT
  Age: 46 Year
  Sex: Female

DRUGS (12)
  1. FUROSEMIDE. [Suspect]
     Active Substance: FUROSEMIDE
  2. PROPRANOLOL [Suspect]
     Active Substance: PROPRANOLOL HYDROCHLORIDE
     Indication: MIGRAINE
  3. CEFUROXIME. [Suspect]
     Active Substance: CEFUROXIME
  4. DICLOFENAC [Suspect]
     Active Substance: DICLOFENAC
     Indication: MIGRAINE
  5. METHYLPREDNISOLONE. [Suspect]
     Active Substance: METHYLPREDNISOLONE
  6. PREDNISONE. [Suspect]
     Active Substance: PREDNISONE
  7. CALCITRIOL. [Suspect]
     Active Substance: CALCITRIOL
  8. ATORVASTATIN [Suspect]
     Active Substance: ATORVASTATIN
     Indication: DYSLIPIDAEMIA
  9. PANTOPRAZOLE [Suspect]
     Active Substance: PANTOPRAZOLE
  10. CEFTRIAXONE. [Suspect]
     Active Substance: CEFTRIAXONE
  11. SIMVASTATIN/FENOFIBRATE [Suspect]
     Active Substance: FENOFIBRATE\SIMVASTATIN
  12. CALCIUM CARBONATE. [Suspect]
     Active Substance: CALCIUM CARBONATE

REACTIONS (4)
  - Acute kidney injury [Recovered/Resolved]
  - Myalgia [Unknown]
  - Drug interaction [Unknown]
  - Liver injury [Recovered/Resolved]
